FAERS Safety Report 8486832-1 (Version None)
Quarter: 2012Q3

REPORT INFORMATION
  Report Type: 
  Country: None (occurrence: None)
  Receive Date: 20120704
  Receipt Date: 20120627
  Transmission Date: 20120928
  Serious: Yes (Other)
  Sender: FDA-Public Use
  Company Number: GB-SP-2012-06417

PATIENT

DRUGS (1)
  1. TICE BCG [Suspect]
     Indication: CARCINOMA IN SITU
     Route: 065

REACTIONS (2)
  - CYSTITIS NONINFECTIVE [None]
  - CONTRACTED BLADDER [None]
